FAERS Safety Report 24082185 (Version 2)
Quarter: 2025Q2

REPORT INFORMATION
  Report Type: Spontaneous
  Country: US (occurrence: US)
  Receive Date: 20240712
  Receipt Date: 20250530
  Transmission Date: 20250717
  Serious: Yes (Death, Other)
  Sender: CIPLA
  Company Number: US-CIPLA LTD.-2024US07099

PATIENT

DRUGS (1)
  1. ALBUTEROL [Suspect]
     Active Substance: ALBUTEROL
     Indication: Chronic obstructive pulmonary disease
     Route: 065

REACTIONS (7)
  - Death [Fatal]
  - Dyspnoea [Unknown]
  - Skin discolouration [Unknown]
  - Salivary hypersecretion [Unknown]
  - Eye movement disorder [Unknown]
  - Product dose omission issue [Unknown]
  - Device defective [Unknown]

NARRATIVE: CASE EVENT DATE: 20221101
